FAERS Safety Report 9398545 (Version 2)
Quarter: 2013Q3

REPORT INFORMATION
  Report Type: Report from Study
  Country: US (occurrence: US)
  Receive Date: 20130712
  Receipt Date: 20130801
  Transmission Date: 20140515
  Serious: Yes (Life-Threatening, Hospitalization)
  Sender: FDA-Public Use
  Company Number: PHEH2013US014615

PATIENT
  Sex: Male
  Weight: 82.99 kg

DRUGS (9)
  1. GILENYA [Suspect]
     Indication: MULTIPLE SCLEROSIS
     Dosage: 0.5 MG, QD
     Route: 048
  2. KLONOPIN [Concomitant]
     Dosage: 0.5 MG, UNK
  3. SERTRALINE [Concomitant]
     Dosage: 100 MG, UNK
  4. LANTUS [Concomitant]
     Dosage: UNK UKN, UNK
  5. ASPIRIN [Concomitant]
     Dosage: 81 MG, UNK
  6. LEVOTHYROXIN [Concomitant]
     Dosage: 25 UG, UNK
  7. CRESTOR [Concomitant]
     Dosage: 10 MG, UNK
  8. NAPROXEN EC [Concomitant]
     Dosage: 375 MG, UNK
  9. HYDROCODONE [Concomitant]

REACTIONS (1)
  - Carotid artery occlusion [Unknown]
